FAERS Safety Report 17128597 (Version 2)
Quarter: 2020Q1

REPORT INFORMATION
  Report Type: Report from Study
  Country: CH (occurrence: CH)
  Receive Date: 20191209
  Receipt Date: 20200113
  Transmission Date: 20200409
  Serious: Yes (Other)
  Sender: FDA-Public Use
  Company Number: PHHY2015CH004279

PATIENT
  Age: 26 Year
  Sex: Female

DRUGS (5)
  1. GILENYA [Suspect]
     Active Substance: FINGOLIMOD HYDROCHLORIDE
     Dosage: UNK UKN, QD
     Route: 048
     Dates: start: 20130729, end: 20180228
  2. VITAMIN D [Concomitant]
     Active Substance: VITAMIN D NOS
     Indication: PROPHYLAXIS
     Dosage: UNK UKN, UNK
     Route: 065
     Dates: start: 20140122
  3. GILENYA [Suspect]
     Active Substance: FINGOLIMOD HYDROCHLORIDE
     Indication: MULTIPLE SCLEROSIS
     Dosage: UNK UKN, QD
     Route: 048
     Dates: start: 20130708, end: 20130718
  4. SOLU-MEDROL [Concomitant]
     Active Substance: METHYLPREDNISOLONE SODIUM SUCCINATE
     Indication: DIPLOPIA
     Dosage: UNK UKN, UNK
     Route: 065
     Dates: start: 20130717, end: 20130717
  5. PANTOPRAZOL [Concomitant]
     Active Substance: PANTOPRAZOLE SODIUM
     Indication: PRODUCT USED FOR UNKNOWN INDICATION
     Dosage: UNK UKN, PRN
     Route: 065
     Dates: start: 20140122

REACTIONS (16)
  - Protein total decreased [Unknown]
  - Flushing [Recovered/Resolved]
  - Oedema peripheral [Unknown]
  - Sinusitis [Recovered/Resolved]
  - Arthralgia [Recovered/Resolved]
  - Urinary tract infection [Recovered/Resolved]
  - Respiratory tract infection [Recovered/Resolved]
  - Chest discomfort [Unknown]
  - Gastric disorder [Recovered/Resolved]
  - Respiratory tract infection [Recovered/Resolved]
  - Angina pectoris [Recovered/Resolved]
  - Palpitations [Unknown]
  - Cough [Recovered/Resolved]
  - Papilloma viral infection [Recovered/Resolved]
  - Abdominal discomfort [Recovered/Resolved]
  - Campylobacter infection [Recovered/Resolved]

NARRATIVE: CASE EVENT DATE: 20130717
